FAERS Safety Report 14354481 (Version 1)
Quarter: 2018Q1

REPORT INFORMATION
  Report Type: Spontaneous
  Country: US (occurrence: US)
  Receive Date: 20180104
  Receipt Date: 20180104
  Transmission Date: 20180509
  Serious: Yes (Hospitalization)
  Sender: FDA-Public Use
  Company Number: None

PATIENT
  Age: 64 Year
  Sex: Female

DRUGS (1)
  1. MORPHINE [Suspect]
     Active Substance: MORPHINE
     Indication: PAIN
     Route: 048
     Dates: start: 20171212, end: 20171214

REACTIONS (6)
  - Mental status changes [None]
  - Refusal of treatment by patient [None]
  - Somnolence [None]
  - Delirium [None]
  - Sedation [None]
  - Confusional state [None]

NARRATIVE: CASE EVENT DATE: 20171214
